FAERS Safety Report 15406327 (Version 1)
Quarter: 2018Q3

REPORT INFORMATION
  Report Type: Spontaneous
  Country: US (occurrence: US)
  Receive Date: 20180918
  Receipt Date: 20180918
  Transmission Date: 20181010
  Serious: Yes (Life-Threatening, Disabling)
  Sender: FDA-Public Use
  Company Number: None

PATIENT
  Age: 42 Year
  Sex: Female

DRUGS (8)
  1. CPAP MACHINE [Concomitant]
  2. ANTIHISTAMINE [Concomitant]
     Active Substance: ANTIHISTAMINES NOS
  3. VITAMIN B12 [Concomitant]
     Active Substance: CYANOCOBALAMIN
  4. MULTI VITAMINS [Concomitant]
     Active Substance: VITAMINS
  5. PAIN MEDICATION [Concomitant]
     Active Substance: UNSPECIFIED INGREDIENT
  6. DEXTROAMPHET SACCHARAT, AMPHET ASPARTATE, DEXTROAMPHET SULFATE AND AMPHET SULFAT [Suspect]
     Active Substance: AMPHETAMINE ASPARTATE\AMPHETAMINE SULFATE\DEXTROAMPHETAMINE SACCHARATE\DEXTROAMPHETAMINE SULFATE
     Indication: SOMNOLENCE
     Dosage: ?          QUANTITY:30 TABLETS
     Route: 048
  7. ANTIDEPRESSANT [Concomitant]
     Active Substance: UNSPECIFIED INGREDIENT
  8. MUSCLE RELAXER [Concomitant]
     Active Substance: UNSPECIFIED INGREDIENT

REACTIONS (3)
  - Somnambulism [None]
  - Drug ineffective [None]
  - Product substitution issue [None]

NARRATIVE: CASE EVENT DATE: 20180918
